FAERS Safety Report 23170844 (Version 1)
Quarter: 2023Q4

REPORT INFORMATION
  Report Type: Spontaneous
  Country: US (occurrence: None)
  Receive Date: 20231109
  Receipt Date: 20231109
  Transmission Date: 20240109
  Serious: Yes (Hospitalization)
  Sender: FDA-Public Use
  Company Number: None

PATIENT
  Sex: Male

DRUGS (25)
  1. MYCOPHENOLIC ACID [Suspect]
     Active Substance: MYCOPHENOLIC ACID
     Dosage: FREQUENCY : TWICE A DAY;?
  2. ALENDRONATE [Concomitant]
  3. AZATHIOPRINE [Concomitant]
  4. AZITHROMYCIN [Concomitant]
     Active Substance: AZITHROMYCIN
  5. CA CITRATE TAB + D [Concomitant]
  6. DILTIAZEM [Concomitant]
  7. FLUDROCORT [Concomitant]
  8. FOLIC ACID [Concomitant]
  9. GABAPENTIN [Concomitant]
  10. GLIMEPIRIDE [Concomitant]
  11. JANUVIA [Concomitant]
  12. LEVEMIR INJ [Concomitant]
  13. LISINOPRIL [Concomitant]
     Active Substance: LISINOPRIL
  14. LISINOPIRL TAB 5MG [Concomitant]
  15. METFORMIN TAB [Concomitant]
  16. MULTI-VITAMIN [Concomitant]
  17. NEXIUM CAP [Concomitant]
  18. PANTOPRAZOLE [Concomitant]
  19. PREDNISONE [Concomitant]
  20. PROGRAF [Concomitant]
  21. SIMVASTATIN [Concomitant]
  22. SMZ/TMP DS [Concomitant]
  23. TACROLIMUS CAP 1MG [Concomitant]
  24. TACROLIMUS 0.5MG CAP [Concomitant]
  25. TRAMADOL HCL TAB 50MG [Concomitant]

REACTIONS (1)
  - Gastrointestinal haemorrhage [None]
